FAERS Safety Report 6845264-X (Version None)
Quarter: 2010Q3

REPORT INFORMATION
  Report Type: 
  Country: None (occurrence: None)
  Receive Date: 20100715
  Receipt Date: 20070815
  Transmission Date: 20110219
  Serious: No
  Sender: FDA-Public Use
  Company Number: US-PFIZER INC-2007069727

PATIENT
  Sex: Female
  Weight: 81.6 kg

DRUGS (16)
  1. CHANTIX [Suspect]
     Indication: SMOKING CESSATION THERAPY
     Dates: start: 20070805
  2. SYNTHROID [Concomitant]
  3. ATENOLOL [Concomitant]
  4. BENICAR HCT [Concomitant]
  5. LIPITOR [Concomitant]
  6. ACETYLSALICYLIC ACID [Concomitant]
  7. PREVACID [Concomitant]
  8. PROZAC [Concomitant]
  9. STELAZINE [Concomitant]
  10. TRAZODONE HYDROCHLORIDE [Concomitant]
  11. NEURONTIN [Concomitant]
  12. SKELAXIN [Concomitant]
  13. PANADEINE CO [Concomitant]
  14. CALCIUM [Concomitant]
  15. GLUCOSAMINE [Concomitant]
  16. IMITREX [Concomitant]
     Route: 048

REACTIONS (3)
  - FATIGUE [None]
  - LETHARGY [None]
  - SOMNOLENCE [None]
